FAERS Safety Report 12551065 (Version 1)
Quarter: 2016Q3

REPORT INFORMATION
  Report Type: Spontaneous
  Country: ES (occurrence: ES)
  Receive Date: 20160713
  Receipt Date: 20160713
  Transmission Date: 20161109
  Serious: Yes (Other)
  Sender: FDA-Public Use
  Company Number: ES-AMGEN-ESPSP2016088393

PATIENT
  Age: 73 Year
  Sex: Female
  Weight: 63.4 kg

DRUGS (1)
  1. PROLIA [Suspect]
     Active Substance: DENOSUMAB
     Indication: OSTEOPOROSIS
     Dosage: 60 MG, UNK
     Route: 065
     Dates: start: 20160405

REACTIONS (3)
  - Formication [Recovered/Resolved]
  - Rash [Recovered/Resolved]
  - Dental discomfort [Recovered/Resolved]

NARRATIVE: CASE EVENT DATE: 20160701
